FAERS Safety Report 9546890 (Version 1)
Quarter: 2013Q3

REPORT INFORMATION
  Report Type: Other
  Country: DE (occurrence: DE)
  Receive Date: 20130924
  Receipt Date: 20130924
  Transmission Date: 20140515
  Serious: Yes (Hospitalization, Congenital Anomaly, Other)
  Sender: FDA-Public Use
  Company Number: DE-LUPIN PHARMACEUTICALS INC.-E2B_00001290

PATIENT
  Age: 1 Day
  Sex: Female
  Weight: 3.71 kg

DRUGS (5)
  1. LAMOTRIGIN [Suspect]
     Indication: BIPOLAR DISORDER
     Route: 064
     Dates: start: 20070513, end: 20080225
  2. QUETIAPINE [Suspect]
     Indication: BIPOLAR DISORDER
     Route: 064
  3. LITHIUM [Suspect]
     Indication: BIPOLAR DISORDER
     Route: 064
     Dates: start: 20070513, end: 20080225
  4. METOPROLOL [Concomitant]
     Indication: HYPERTENSION
     Route: 064
  5. AUGMENTAN [Concomitant]
     Indication: BACTERIAL INFECTION
     Route: 064
     Dates: start: 20080224, end: 20080225

REACTIONS (9)
  - Coarctation of the aorta [Unknown]
  - Congenital aortic valve stenosis [Recovered/Resolved]
  - Patent ductus arteriosus [Recovered/Resolved]
  - Hypotonia [Recovered/Resolved]
  - Hypotension [Recovered/Resolved]
  - Neonatal respiratory distress syndrome [Recovered/Resolved]
  - Bradycardia neonatal [Recovered/Resolved]
  - Atrial septal defect [Unknown]
  - Foetal exposure during pregnancy [None]
